FAERS Safety Report 22007437 (Version 1)
Quarter: 2023Q1

REPORT INFORMATION
  Report Type: Report from Study
  Country: IN (occurrence: IN)
  Receive Date: 20230218
  Receipt Date: 20230218
  Transmission Date: 20230417
  Serious: Yes (Other)
  Sender: FDA-Public Use
  Company Number: IN-002147023-NVSC2022IN235076

PATIENT
  Sex: Female

DRUGS (5)
  1. SECUKINUMAB [Suspect]
     Active Substance: SECUKINUMAB
     Indication: Axial spondyloarthritis
     Dosage: 150 MG, QMO
     Route: 058
  2. DENOSUMAB [Concomitant]
     Active Substance: DENOSUMAB
     Indication: Product used for unknown indication
     Dosage: 60 MG, ONCE IN 6 MONTH
     Route: 058
  3. HAEM UP [Concomitant]
     Indication: Product used for unknown indication
     Dosage: UNK, QD
     Route: 065
  4. ETOSHINE [Concomitant]
     Indication: Product used for unknown indication
     Dosage: 60 MG, QD / SOS (AFTER FOOD)
     Route: 065
  5. CHOLECALCIFEROL [Concomitant]
     Active Substance: CHOLECALCIFEROL
     Indication: Product used for unknown indication
     Dosage: 6000 IU, QMO
     Route: 065

REACTIONS (5)
  - Bone tuberculosis [Unknown]
  - Red blood cell sedimentation rate abnormal [Unknown]
  - Osteoporosis [Unknown]
  - Haemoglobin abnormal [Unknown]
  - Inappropriate schedule of product administration [Unknown]

NARRATIVE: CASE EVENT DATE: 20210101
